FAERS Safety Report 25452493 (Version 1)
Quarter: 2025Q2

REPORT INFORMATION
  Report Type: Spontaneous
  Country: US (occurrence: US)
  Receive Date: 20250618
  Receipt Date: 20250618
  Transmission Date: 20250716
  Serious: No
  Sender: JOHNSON AND JOHNSON
  Company Number: US-JNJFOC-20250622216

PATIENT

DRUGS (2)
  1. DARZALEX [Suspect]
     Active Substance: DARATUMUMAB
     Indication: Amyloidosis
  2. DARZALEX [Suspect]
     Active Substance: DARATUMUMAB

REACTIONS (2)
  - Product administration interrupted [Unknown]
  - Product dose omission issue [Unknown]
